FAERS Safety Report 4764864-4 (Version None)
Quarter: 2005Q3

REPORT INFORMATION
  Report Type: 
  Country: None (occurrence: None)
  Receive Date: 20050906
  Receipt Date: 20050826
  Transmission Date: 20060218
  Serious: Yes (Other)
  Sender: FDA-Public Use
  Company Number: 2005120787

PATIENT
  Age: 28 Year
  Sex: Female
  Weight: 108.8633 kg

DRUGS (13)
  1. ZOLOFT [Suspect]
     Indication: DEPRESSION
     Dates: start: 19900101
  2. ZYRTEC [Suspect]
     Indication: MULTIPLE ALLERGIES
     Dosage: 10 MG  (10 MG, 1 IN 1 D), ORAL
     Route: 048
     Dates: start: 19990101
  3. CELEBREX [Suspect]
     Indication: ARTHRITIS
     Dosage: 200 MG (200 MG, 1 IN 1 D), ORAL
     Route: 048
     Dates: start: 20030101
  4. NEURONTIN [Suspect]
     Indication: LIMB DISCOMFORT
     Dosage: 300 MG (300 MG, 1 IN 1 D), ORAL
     Route: 048
     Dates: start: 20040101
  5. PRAVACHOL [Suspect]
     Indication: BLOOD CHOLESTEROL INCREASED
     Dates: end: 20050708
  6. LEVOXYL [Concomitant]
  7. PRILOSEC [Concomitant]
  8. AMITRIPTYLINE HCL [Concomitant]
  9. INDAPAMIDE [Concomitant]
  10. VERAPAMIL [Concomitant]
  11. POTASSIUM CHLORIDE [Concomitant]
  12. DICYCLOMINE (DICYCLOVERINE) [Concomitant]
  13. SINGULAIR ^MERCK^ (MONTELUKAST SODIUM) [Concomitant]

REACTIONS (11)
  - ARTHRITIS [None]
  - BACK INJURY [None]
  - BLOOD CHOLESTEROL INCREASED [None]
  - BLOOD TRIGLYCERIDES INCREASED [None]
  - DYSKINESIA [None]
  - FALL [None]
  - FRACTURED COCCYX [None]
  - MULTIPLE ALLERGIES [None]
  - MUSCLE SPASMS [None]
  - PAIN IN EXTREMITY [None]
  - SINUS DISORDER [None]
